FAERS Safety Report 18717415 (Version 2)
Quarter: 2021Q1

REPORT INFORMATION
  Report Type: Spontaneous
  Country: AR (occurrence: AR)
  Receive Date: 20210108
  Receipt Date: 20210114
  Transmission Date: 20210419
  Serious: Yes (Hospitalization)
  Sender: FDA-Public Use
  Company Number: AR-PFIZER INC-2021007352

PATIENT
  Age: 85 Year
  Sex: Male

DRUGS (3)
  1. POLPER B12 [Concomitant]
     Dosage: UNK, 1X/DAY
  2. SUTENT [Suspect]
     Active Substance: SUNITINIB MALATE
     Indication: METASTATIC RENAL CELL CARCINOMA
     Dosage: 50 MG, DAILY, SCHEME 2/1
     Dates: start: 20201125, end: 2020
  3. ENSURE [NUTRIENTS NOS] [Concomitant]
     Dosage: UNK
     Dates: start: 202012

REACTIONS (6)
  - Asthenia [Unknown]
  - Dehydration [Recovered/Resolved]
  - Decreased appetite [Unknown]
  - Neoplasm progression [Recovered/Resolved]
  - Malaise [Unknown]
  - Vomiting [Unknown]

NARRATIVE: CASE EVENT DATE: 20201129
